FAERS Safety Report 25740411 (Version 1)
Quarter: 2025Q3

REPORT INFORMATION
  Report Type: Spontaneous
  Country: JP (occurrence: JP)
  Receive Date: 20250829
  Receipt Date: 20250829
  Transmission Date: 20251021
  Serious: Yes (Death)
  Sender: OTSUKA
  Company Number: JP-MMM-Otsuka-YH285MNC

PATIENT
  Age: 10 Decade

DRUGS (1)
  1. REXULTI [Suspect]
     Active Substance: BREXPIPRAZOLE
     Indication: Product used for unknown indication
     Dosage: 0.5 MG/DAY
     Route: 048
     Dates: start: 202508

REACTIONS (1)
  - Death [Fatal]

NARRATIVE: CASE EVENT DATE: 20250801
